FAERS Safety Report 25796001 (Version 1)
Quarter: 2025Q3

REPORT INFORMATION
  Report Type: Spontaneous
  Country: EU (occurrence: EU)
  Receive Date: 20250912
  Receipt Date: 20250912
  Transmission Date: 20251021
  Serious: Yes (Hospitalization)
  Sender: PFIZER
  Company Number: None

PATIENT
  Age: 40 Year
  Sex: Male

DRUGS (3)
  1. LINEZOLID [Suspect]
     Active Substance: LINEZOLID
     Indication: Pneumonitis
     Dosage: 600 MG, 2X/DAY
     Route: 048
  2. CIPROFLOXACIN HYDROGEN SULFATE [Suspect]
     Active Substance: CIPROFLOXACIN HYDROGEN SULFATE
     Indication: Urinary tract infection
     Dosage: 400 MG, 2X/DAY
     Route: 042
     Dates: start: 20250827, end: 20250827
  3. MEROPENEM [Suspect]
     Active Substance: MEROPENEM
     Indication: Pneumonitis
     Dosage: 1 G, 3X/DAY
     Route: 042

REACTIONS (1)
  - Sinus bradycardia [Recovered/Resolved]

NARRATIVE: CASE EVENT DATE: 20250827
